FAERS Safety Report 19499632 (Version 1)
Quarter: 2021Q3

REPORT INFORMATION
  Report Type: Spontaneous
  Country: GR (occurrence: GR)
  Receive Date: 20210706
  Receipt Date: 20210706
  Transmission Date: 20211014
  Serious: Yes (Other)
  Sender: FDA-Public Use
  Company Number: GR-TEVA-2021-GR-1930264

PATIENT
  Age: 50 Year
  Sex: Male

DRUGS (4)
  1. CISPLATIN. [Suspect]
     Active Substance: CISPLATIN
     Indication: PENILE SQUAMOUS CELL CARCINOMA
     Dosage: 25MG/M2
     Route: 065
  2. PACLITAXEL. [Suspect]
     Active Substance: PACLITAXEL
     Indication: PENILE SQUAMOUS CELL CARCINOMA
     Dosage: 175MG/M2
  3. IFOSFAMIDE. [Concomitant]
     Active Substance: IFOSFAMIDE
     Indication: PENILE SQUAMOUS CELL CARCINOMA
     Dosage: 1200MG/M2
  4. DEXAMETHAZONE [Concomitant]
     Active Substance: DEXAMETHASONE
     Indication: CHEMOTHERAPY

REACTIONS (1)
  - Pneumonitis [Recovered/Resolved]
